FAERS Safety Report 16932682 (Version 6)
Quarter: 2020Q1

REPORT INFORMATION
  Report Type: Spontaneous
  Country: DE (occurrence: DE)
  Receive Date: 20191018
  Receipt Date: 20200116
  Transmission Date: 20200409
  Serious: Yes (Other)
  Sender: FDA-Public Use
  Company Number: DE-HETERO-HET2019DE00907

PATIENT
  Age: 38 Year
  Sex: Male
  Weight: 74 kg

DRUGS (3)
  1. FINASTERIDE. [Suspect]
     Active Substance: FINASTERIDE
     Indication: ANDROGENETIC ALOPECIA
  2. PROSCAR [Suspect]
     Active Substance: FINASTERIDE
     Indication: ALOPECIA
     Dosage: 1.25 MG, QD
     Route: 048
     Dates: start: 201204, end: 201708
  3. FINASTERIDE. [Suspect]
     Active Substance: FINASTERIDE
     Indication: ALOPECIA
     Dosage: 1 MILLIGRAM, QD (TABLET 1 MG/DAY)
     Route: 048
     Dates: start: 2000, end: 2016

REACTIONS (75)
  - Memory impairment [Unknown]
  - Apathy [Unknown]
  - Ejaculation failure [Not Recovered/Not Resolved]
  - Malaise [Unknown]
  - Irritability [Unknown]
  - Pharyngitis [Unknown]
  - Migraine [Unknown]
  - Epigastric discomfort [Unknown]
  - Interspinous osteoarthritis [Unknown]
  - Nausea [Unknown]
  - Lyme disease [Recovered/Resolved]
  - Borrelia infection [Unknown]
  - Sleep disorder [Unknown]
  - Immunisation [Unknown]
  - Viral infection [Unknown]
  - Epstein-Barr virus infection [Unknown]
  - Decreased immune responsiveness [Unknown]
  - Arthralgia [Unknown]
  - Angina pectoris [Unknown]
  - Post 5-alpha-reductase inhibitor syndrome [Unknown]
  - Seasonal allergy [Unknown]
  - Gingivitis [Unknown]
  - Snoring [Unknown]
  - Insomnia [Unknown]
  - Depression [Not Recovered/Not Resolved]
  - Incorrect dose administered [Unknown]
  - Gastroenteritis [Unknown]
  - Angina pectoris [Unknown]
  - Anhedonia [Unknown]
  - General physical health deterioration [Unknown]
  - Periodontitis [Unknown]
  - Asthenia [Unknown]
  - Sleep disorder [Unknown]
  - Fatigue [Unknown]
  - Depression [Unknown]
  - Spinal disorder [Unknown]
  - Stress [Unknown]
  - Infection susceptibility increased [Unknown]
  - Viral infection [Unknown]
  - Personality disorder [Unknown]
  - Bronchitis [Unknown]
  - Anaemia [Unknown]
  - Wrong technique in product usage process [Unknown]
  - Product use in unapproved indication [Unknown]
  - Bronchitis [Unknown]
  - Bradyphrenia [Unknown]
  - Hepatitis immunisation [Unknown]
  - Influenza immunisation [Unknown]
  - Arthropod bite [Unknown]
  - Depressed mood [Not Recovered/Not Resolved]
  - Disturbance in attention [Not Recovered/Not Resolved]
  - Psychophysiologic insomnia [Unknown]
  - Appendicectomy [Unknown]
  - Somnolence [Unknown]
  - Laryngitis [Unknown]
  - Bilirubin conjugated abnormal [Unknown]
  - Pathogen resistance [Unknown]
  - Persistent depressive disorder [Unknown]
  - Depressed mood [Unknown]
  - Eczema [Unknown]
  - Facet joint syndrome [Unknown]
  - Respiratory arrest [Unknown]
  - Appendicitis [Unknown]
  - Somatic symptom disorder [Unknown]
  - Fatigue [Recovering/Resolving]
  - Alopecia [Unknown]
  - Aortic valve sclerosis [Unknown]
  - Anxiety disorder [Unknown]
  - Nervousness [Unknown]
  - Nasopharyngitis [Unknown]
  - Performance status decreased [Unknown]
  - Somatic symptom disorder [Unknown]
  - Mood swings [Unknown]
  - Libido decreased [Not Recovered/Not Resolved]
  - Influenza [Unknown]

NARRATIVE: CASE EVENT DATE: 20010507
